FAERS Safety Report 9688165 (Version 1)
Quarter: 2013Q4

REPORT INFORMATION
  Report Type: Spontaneous
  Country: US (occurrence: None)
  Receive Date: 20131113
  Receipt Date: 20131113
  Transmission Date: 20140711
  Serious: Yes (Death, Hospitalization)
  Sender: FDA-Public Use
  Company Number: None

PATIENT
  Age: 18 Year
  Sex: Male

DRUGS (1)
  1. ZITHROMAX [Suspect]
     Dates: start: 20121127, end: 20121216

REACTIONS (3)
  - Sepsis [None]
  - Cardiac failure congestive [None]
  - Hepatitis cholestatic [None]
